FAERS Safety Report 8307724 (Version 2)
Quarter: 2014Q1

REPORT INFORMATION
  Report Type: Spontaneous
  Country: US (occurrence: US)
  Receive Date: 20111222
  Receipt Date: 20140122
  Transmission Date: 20141002
  Serious: Yes (Other)
  Sender: FDA-Public Use
  Company Number: US-BAYER-2011-121487

PATIENT
  Age: 19 Year
  Sex: Female

DRUGS (10)
  1. YAZ [Suspect]
     Dosage: UNK
     Dates: start: 2001, end: 2009
  2. YASMIN [Suspect]
     Dosage: UNK
     Dates: start: 2001, end: 2009
  3. NASACORT [Concomitant]
     Dosage: UNK
  4. ALBUTEROL [Concomitant]
     Dosage: UNK
  5. AMOXICILLIN [Concomitant]
     Dosage: 500 MG, UNK
     Dates: start: 20060221
  6. ADVAIR [Concomitant]
     Dosage: 100/50, UNK
     Dates: start: 20060221
  7. PHENERGAN [Concomitant]
     Dosage: UNK
  8. LEXAPRO [Concomitant]
     Dosage: UNK
  9. SEROQUEL [Concomitant]
     Dosage: UNK
  10. PREVACID [Concomitant]
     Dosage: UNK

REACTIONS (6)
  - Gallbladder disorder [None]
  - Post cholecystectomy syndrome [None]
  - Injury [None]
  - Pain [None]
  - Anxiety [None]
  - Cholelithiasis [None]
